FAERS Safety Report 6371868-7 (Version None)
Quarter: 2009Q3

REPORT INFORMATION
  Report Type: 
  Country: None (occurrence: None)
  Receive Date: 20090923
  Receipt Date: 20090916
  Transmission Date: 20100115
  Serious: Yes (Hospitalization)
  Sender: FDA-Public Use
  Company Number: PHHO2009DK11040

PATIENT
  Sex: Male
  Weight: 65 kg

DRUGS (2)
  1. RAD 666 RAD+TAB [Suspect]
     Indication: RENAL TRANSPLANT
     Dosage: 3 MG, BID
     Route: 048
  2. RAD 666 RAD+TAB [Suspect]
     Dosage: 2.5 MG, BID
     Route: 048

REACTIONS (3)
  - ANAEMIA [None]
  - APHTHOUS STOMATITIS [None]
  - PYREXIA [None]
